FAERS Safety Report 7121031-7 (Version None)
Quarter: 2010Q4

REPORT INFORMATION
  Report Type: 
  Country: None (occurrence: None)
  Receive Date: 20101124
  Receipt Date: 20101115
  Transmission Date: 20110411
  Serious: Yes (Other)
  Sender: FDA-Public Use
  Company Number: US-JNJFOC-20101105281

PATIENT
  Sex: Female

DRUGS (3)
  1. DURAGESIC-100 [Suspect]
     Indication: PAIN
     Route: 062
  2. DURAGESIC-100 [Suspect]
     Route: 062
  3. DIAZEPAM [Concomitant]
     Indication: TREMOR
     Dosage: 1 TABLET AS NEEDED
     Route: 048

REACTIONS (6)
  - ADVERSE EVENT [None]
  - DEPRESSION [None]
  - DRUG DOSE OMISSION [None]
  - NEUROPATHY PERIPHERAL [None]
  - PAIN [None]
  - TREMOR [None]
